FAERS Safety Report 7310489-6 (Version None)
Quarter: 2011Q1

REPORT INFORMATION
  Report Type: 
  Country: None (occurrence: None)
  Receive Date: 20110224
  Receipt Date: 20101019
  Transmission Date: 20110831
  Serious: No
  Sender: FDA-Public Use
  Company Number: US-BRISTOL-MYERS SQUIBB COMPANY-15342033

PATIENT
  Sex: Male

DRUGS (3)
  1. GLIPIZIDE [Concomitant]
  2. METFORMIN HCL [Suspect]
  3. ACTOS [Concomitant]

REACTIONS (1)
  - DAWN PHENOMENON [None]
